FAERS Safety Report 7231320-3 (Version None)
Quarter: 2011Q1

REPORT INFORMATION
  Report Type: 
  Country: None (occurrence: None)
  Receive Date: 20110118
  Receipt Date: 20110107
  Transmission Date: 20110831
  Serious: Yes (Congenital Anomaly, Other)
  Sender: FDA-Public Use
  Company Number: PHHY2011GB02081

PATIENT
  Sex: Male
  Weight: 2.74 kg

DRUGS (7)
  1. CEFADROXIL [Suspect]
     Route: 064
  2. PARACETAMOL [Suspect]
     Dosage: 7.5 MG
     Route: 064
  3. CO-DANTHRAMER [Suspect]
  4. CODEINE SULFATE [Suspect]
     Route: 064
  5. ACYCLOVIR [Suspect]
     Route: 064
  6. DIHYDROCODEINE BITARTRATE INJ [Suspect]
     Route: 064
  7. CLOTRIMAZOLE [Suspect]

REACTIONS (3)
  - SPINA BIFIDA OCCULTA [None]
  - MATERNAL DRUGS AFFECTING FOETUS [None]
  - STRABISMUS [None]
